FAERS Safety Report 21468817 (Version 1)
Quarter: 2022Q4

REPORT INFORMATION
  Report Type: Spontaneous
  Country: US (occurrence: US)
  Receive Date: 20221018
  Receipt Date: 20221018
  Transmission Date: 20230113
  Serious: Yes (Hospitalization, Other)
  Sender: FDA-Public Use
  Company Number: US-MYLANLABS-2022M1095147

PATIENT
  Age: 83 Year
  Sex: Male

DRUGS (6)
  1. GLIMEPIRIDE [Suspect]
     Active Substance: GLIMEPIRIDE
     Indication: Type 2 diabetes mellitus
     Dosage: UNK
     Route: 065
  2. ATORVASTATIN [Concomitant]
     Active Substance: ATORVASTATIN
     Indication: Product used for unknown indication
     Dosage: UNK
     Route: 065
  3. ASPIRIN [Concomitant]
     Active Substance: ASPIRIN
     Indication: Product used for unknown indication
     Dosage: UNK
     Route: 065
  4. CLONAZEPAM [Concomitant]
     Active Substance: CLONAZEPAM
     Indication: Chorea
     Dosage: SHORT COURSE
     Route: 065
  5. NITROGLYCERIN [Concomitant]
     Active Substance: NITROGLYCERIN
     Indication: Product used for unknown indication
     Dosage: UNK
     Route: 060
  6. OLANZAPINE [Concomitant]
     Active Substance: OLANZAPINE
     Indication: Chorea
     Dosage: UNK
     Route: 065

REACTIONS (5)
  - Failure to thrive [Recovering/Resolving]
  - Pain in extremity [Recovering/Resolving]
  - Chorea [Recovering/Resolving]
  - Hypoglycaemia [Recovering/Resolving]
  - Arthralgia [Recovering/Resolving]
